FAERS Safety Report 4784330-X (Version None)
Quarter: 2005Q3

REPORT INFORMATION
  Report Type: 
  Country: None (occurrence: None)
  Receive Date: 20050930
  Receipt Date: 20050923
  Transmission Date: 20060218
  Serious: Yes (Hospitalization)
  Sender: FDA-Public Use
  Company Number: FR-JNJFOC-20050905899

PATIENT
  Age: 55 Year
  Sex: Male
  Weight: 55 kg

DRUGS (8)
  1. RISPERDAL [Suspect]
     Indication: DRUG USE FOR UNKNOWN INDICATION
     Route: 048
  2. ATARAX [Concomitant]
     Route: 065
  3. CITALOPRAM HYDROBROMIDE [Concomitant]
     Route: 065
  4. FORLAX [Concomitant]
     Dosage: 2 SACHETS
     Route: 065
  5. TRANXENE [Concomitant]
     Route: 065
  6. TEGRETOL [Concomitant]
     Route: 065
  7. DIANTALVIC [Concomitant]
     Route: 065
  8. DIANTALVIC [Concomitant]
     Dosage: 2 CAPSULES ON 22 SEP EVENING
     Route: 065

REACTIONS (3)
  - COMA [None]
  - HYPOTONIA [None]
  - RESPIRATORY DISTRESS [None]
